FAERS Safety Report 8359568-5 (Version None)
Quarter: 2012Q2

REPORT INFORMATION
  Report Type: 
  Country: None (occurrence: None)
  Receive Date: 20120515
  Receipt Date: 20120504
  Transmission Date: 20120825
  Serious: Yes (Disabling, Other)
  Sender: FDA-Public Use
  Company Number: US-ELI_LILLY_AND_COMPANY-US201205002044

PATIENT
  Sex: Female

DRUGS (4)
  1. LANTUS [Concomitant]
  2. HUMALOG [Suspect]
     Indication: TYPE 1 DIABETES MELLITUS
     Dosage: UNK, PRN
  3. LEVEMIR [Concomitant]
     Dosage: UNK
  4. HUMALOG [Suspect]
     Dosage: UNK, PRN
     Dates: start: 19920101

REACTIONS (9)
  - BLOOD GLUCOSE ABNORMAL [None]
  - BLOOD GLUCOSE DECREASED [None]
  - BLOOD GLUCOSE INCREASED [None]
  - INSULIN RESISTANCE [None]
  - INCORRECT ROUTE OF DRUG ADMINISTRATION [None]
  - HYPERHIDROSIS [None]
  - NEUROPATHY PERIPHERAL [None]
  - PARALYSIS [None]
  - DIPLOPIA [None]
